FAERS Safety Report 7530605 (Version 2)
Quarter: 2014Q1

REPORT INFORMATION
  Report Type: Spontaneous
  Country: US (occurrence: US)
  Receive Date: 20100806
  Receipt Date: 20140131
  Transmission Date: 20141002
  Serious: Yes (Other)
  Sender: FDA-Public Use
  Company Number: US-ROCHE-694471

PATIENT
  Age: 23 Year
  Sex: Female
  Weight: 68 kg

DRUGS (1)
  1. ACCUTANE [Suspect]
     Indication: ACNE
     Route: 065
     Dates: start: 19970731, end: 19971225

REACTIONS (8)
  - Inflammatory bowel disease [Unknown]
  - Proctitis ulcerative [Unknown]
  - Anal fistula [Unknown]
  - Anal fissure [Unknown]
  - Proctitis [Unknown]
  - Depression [Unknown]
  - Chapped lips [Unknown]
  - Cheilitis [Unknown]
